FAERS Safety Report 16751057 (Version 1)
Quarter: 2019Q3

REPORT INFORMATION
  Report Type: Spontaneous
  Country: FR (occurrence: FR)
  Receive Date: 20190828
  Receipt Date: 20190828
  Transmission Date: 20191005
  Serious: Yes (Other)
  Sender: FDA-Public Use
  Company Number: FR-MYLANLABS-2019M1079806

PATIENT
  Age: 86 Year
  Sex: Female
  Weight: 57 kg

DRUGS (3)
  1. CARBOPLATIN ACCORD [Suspect]
     Active Substance: CARBOPLATIN
     Indication: OVARIAN CANCER
     Dosage: 220MG/CURE
     Route: 041
     Dates: start: 20190307, end: 20190307
  2. ONDANSETRON [Suspect]
     Active Substance: ONDANSETRON
     Indication: PREMEDICATION
     Dosage: 8 MILLIGRAM
     Dates: start: 20190307, end: 20190307
  3. METHYLPREDNISOLONE. [Suspect]
     Active Substance: METHYLPREDNISOLONE
     Indication: PREMEDICATION
     Dosage: 120 MILLIGRAM
     Route: 041
     Dates: start: 20190307, end: 20190307

REACTIONS (6)
  - Dyspnoea [Recovered/Resolved]
  - Hot flush [Recovered/Resolved]
  - Oxygen saturation decreased [Recovered/Resolved]
  - Dysphagia [Recovered/Resolved]
  - Nausea [Recovered/Resolved]
  - Somnolence [Recovered/Resolved]

NARRATIVE: CASE EVENT DATE: 20190307
